FAERS Safety Report 6811357-6 (Version None)
Quarter: 2010Q2

REPORT INFORMATION
  Report Type: 
  Country: None (occurrence: None)
  Receive Date: 20100630
  Receipt Date: 20100201
  Transmission Date: 20101027
  Serious: Yes (Other)
  Sender: FDA-Public Use
  Company Number: US-AMGEN-KDL378658

PATIENT
  Sex: Female
  Weight: 54.5 kg

DRUGS (5)
  1. PROCRIT [Suspect]
     Indication: ANAEMIA OF MALIGNANT DISEASE
     Dates: start: 20091101
  2. PROCRIT [Suspect]
     Indication: RENAL FAILURE CHRONIC
  3. LASIX [Concomitant]
  4. DIGOXIN [Concomitant]
  5. COUMADIN [Concomitant]

REACTIONS (1)
  - HAEMOGLOBIN DECREASED [None]
